FAERS Safety Report 9751996 (Version 1)
Quarter: 2013Q4

REPORT INFORMATION
  Report Type: Spontaneous
  Country: US (occurrence: None)
  Receive Date: 20131211
  Receipt Date: 20131211
  Transmission Date: 20140711
  Serious: No
  Sender: FDA-Public Use
  Company Number: None

PATIENT
  Age: 63 Year
  Sex: Male
  Weight: 74 kg

DRUGS (19)
  1. WARFARIN [Suspect]
     Indication: DEEP VEIN THROMBOSIS
     Route: 048
  2. WARFARIN [Suspect]
     Indication: PULMONARY EMBOLISM
     Route: 048
  3. DALTEPARIN [Suspect]
     Indication: DEEP VEIN THROMBOSIS
     Dosage: 12500 UNITS, QD, SUBCUTANEOUS
     Route: 058
  4. DALTEPARIN [Suspect]
     Indication: PULMONARY EMBOLISM
     Dosage: 12500 UNITS, QD, SUBCUTANEOUS
     Route: 058
  5. MULTIVITAMIN [Concomitant]
  6. TRIAMCINOLONE CREAM [Concomitant]
  7. PRAVASTATIN [Concomitant]
  8. POTASSIUM PHOSPHATE [Concomitant]
  9. ASPIRIN [Concomitant]
  10. CARBIDOPA/LEVODOPA [Concomitant]
  11. CLONAZEPAM [Concomitant]
  12. DOCUSATE/SENNA [Concomitant]
  13. FLUOXETINE [Concomitant]
  14. LISINOPRIL [Concomitant]
  15. METFORMIN [Concomitant]
  16. METHYLCELLULOSE OPHTHALMIC [Concomitant]
  17. METOPROLOL [Concomitant]
  18. OXYCODONE/ACETAMINOPHNE [Concomitant]
  19. POLYETHYLENE GLYCOL [Concomitant]

REACTIONS (2)
  - Haematuria [None]
  - International normalised ratio increased [None]
